FAERS Safety Report 15351623 (Version 1)
Quarter: 2018Q3

REPORT INFORMATION
  Report Type: Spontaneous
  Country: US (occurrence: US)
  Receive Date: 20180829
  Receipt Date: 20180829
  Transmission Date: 20181010
  Serious: No
  Sender: FDA-Public Use
  Company Number: None

PATIENT
  Age: 56 Year
  Sex: Female

DRUGS (1)
  1. ENBREL [Suspect]
     Active Substance: ETANERCEPT
     Route: 058
     Dates: start: 20180530, end: 20180822

REACTIONS (4)
  - Rash [None]
  - Urticaria [None]
  - Injection site reaction [None]
  - Pruritus [None]

NARRATIVE: CASE EVENT DATE: 20180822
